FAERS Safety Report 7178180-7 (Version None)
Quarter: 2010Q4

REPORT INFORMATION
  Report Type: 
  Country: None (occurrence: None)
  Receive Date: 20101208
  Receipt Date: 20101123
  Transmission Date: 20110411
  Serious: Yes (Hospitalization)
  Sender: FDA-Public Use
  Company Number: 022821

PATIENT
  Age: 59 Year
  Sex: Male

DRUGS (9)
  1. KEPPRA [Suspect]
     Indication: PARTIAL SEIZURES
     Dosage: (750 MG BID ORAL)
     Route: 048
     Dates: start: 20090201
  2. BISOPROLOL (BISOPROLOL) [Suspect]
     Indication: HYPERTENSION
     Dosage: (5 MG BID ORAL)
     Route: 048
     Dates: start: 20050101, end: 20090207
  3. TEGRETOL [Suspect]
     Indication: PARTIAL SEIZURES
     Dosage: (900 MG, 400-0-500MG ORAL), (200 MG BID ORAL), (200 MG QD ORAL)
     Route: 048
     Dates: start: 20090207, end: 20090214
  4. TEGRETOL [Suspect]
     Indication: PARTIAL SEIZURES
     Dosage: (900 MG, 400-0-500MG ORAL), (200 MG BID ORAL), (200 MG QD ORAL)
     Route: 048
     Dates: start: 20090214, end: 20090221
  5. TEGRETOL [Suspect]
     Indication: PARTIAL SEIZURES
     Dosage: (900 MG, 400-0-500MG ORAL), (200 MG BID ORAL), (200 MG QD ORAL)
     Route: 048
     Dates: start: 20050101
  6. TICLOPIDINE HCL [Concomitant]
  7. MOVICOL /01053601/ [Concomitant]
  8. ENALAPRIL [Concomitant]
  9. HYDROCHLOROTHIAZIDE [Concomitant]

REACTIONS (8)
  - ANTICONVULSANT DRUG LEVEL INCREASED [None]
  - DRUG INTERACTION [None]
  - OVERDOSE [None]
  - PSYCHOMOTOR RETARDATION [None]
  - SINUS ARREST [None]
  - SINUS BRADYCARDIA [None]
  - SOMNOLENCE [None]
  - UNRESPONSIVE TO STIMULI [None]
